FAERS Safety Report 12212720 (Version 1)
Quarter: 2016Q1

REPORT INFORMATION
  Report Type: Spontaneous
  Country: JP (occurrence: JP)
  Receive Date: 20160328
  Receipt Date: 20160328
  Transmission Date: 20160526
  Serious: Yes (Other)
  Sender: FDA-Public Use
  Company Number: JP-JNJFOC-20160307245

PATIENT
  Sex: Male

DRUGS (2)
  1. RIUP X5 [Suspect]
     Active Substance: MINOXIDIL
     Route: 065
  2. RIUP X5 [Suspect]
     Active Substance: MINOXIDIL
     Indication: PRODUCT USED FOR UNKNOWN INDICATION
     Route: 065

REACTIONS (6)
  - Drug ineffective [Unknown]
  - Application site pruritus [Unknown]
  - Renal impairment [Unknown]
  - Chest pain [Unknown]
  - Headache [Unknown]
  - Application site rash [Unknown]
